FAERS Safety Report 24369568 (Version 1)
Quarter: 2024Q3

REPORT INFORMATION
  Report Type: Report from Study
  Country: US (occurrence: US)
  Receive Date: 20240927
  Receipt Date: 20240927
  Transmission Date: 20241016
  Serious: No
  Sender: ROCHE
  Company Number: US-ROCHE-3468621

PATIENT
  Age: 41 Year
  Sex: Female

DRUGS (1)
  1. LUCENTIS [Suspect]
     Active Substance: RANIBIZUMAB
     Indication: Type 2 diabetes mellitus
     Dosage: INJECT 0.3 MG VIA INTRAVITREAL ADMINISTRATION INTO EACH EYE EVERY 4 WEEK(S)
     Route: 050

REACTIONS (2)
  - No adverse event [Unknown]
  - Intercepted product storage error [Unknown]
